FAERS Safety Report 6667247-5 (Version None)
Quarter: 2010Q2

REPORT INFORMATION
  Report Type: 
  Country: None (occurrence: None)
  Receive Date: 20100405
  Receipt Date: 20100325
  Transmission Date: 20101027
  Serious: Yes (Other)
  Sender: FDA-Public Use
  Company Number: CA-JNJFOC-20100205597

PATIENT
  Sex: Female
  Weight: 62.6 kg

DRUGS (5)
  1. REMICADE [Suspect]
     Indication: PSORIATIC ARTHROPATHY
     Dosage: INFUSION #7
     Route: 042
  2. REMICADE [Suspect]
     Dosage: INFUSION #6
     Route: 042
  3. REMICADE [Suspect]
     Route: 042
  4. METHOTREXATE [Concomitant]
     Route: 058
  5. OXYCET [Concomitant]
     Indication: PAIN

REACTIONS (2)
  - RASH ERYTHEMATOUS [None]
  - SYSTEMIC LUPUS ERYTHEMATOSUS [None]
